FAERS Safety Report 6398444-4 (Version None)
Quarter: 2009Q4

REPORT INFORMATION
  Report Type: 
  Country: None (occurrence: None)
  Receive Date: 20091013
  Receipt Date: 20091005
  Transmission Date: 20100525
  Serious: Yes (Hospitalization, Congenital Anomaly)
  Sender: FDA-Public Use
  Company Number: A0681622A

PATIENT
  Sex: Male
  Weight: 4.1 kg

DRUGS (3)
  1. PAXIL [Suspect]
     Indication: DEPRESSION
     Dosage: 30MG PER DAY
     Dates: start: 19950301, end: 19970301
  2. VITAMIN AND MINERAL PRENATAL SUPPLEMENT W/ FOLIC ACID CAP [Concomitant]
  3. PROZAC [Concomitant]

REACTIONS (6)
  - DRUG EXPOSURE DURING PREGNANCY [None]
  - DYSMORPHISM [None]
  - EAR DISORDER [None]
  - MULTIPLE CONGENITAL ABNORMALITIES [None]
  - SUPRAVENTRICULAR EXTRASYSTOLES [None]
  - WOLFF-PARKINSON-WHITE SYNDROME [None]
